FAERS Safety Report 14629511 (Version 1)
Quarter: 2018Q1

REPORT INFORMATION
  Report Type: Spontaneous
  Country: GB (occurrence: GB)
  Receive Date: 20180313
  Receipt Date: 20180313
  Transmission Date: 20180509
  Serious: Yes (Death, Life-Threatening, Hospitalization, Other)
  Sender: FDA-Public Use
  Company Number: GB-BAXTER-2018BAX007364

PATIENT
  Age: 69 Year
  Sex: Female

DRUGS (4)
  1. OCTREOTIDE. [Suspect]
     Active Substance: OCTREOTIDE
     Indication: CARCINOID SYNDROME
  2. SODIUM CHLORIDE 0.9% INTRAVENOUS INFUSION BP [Suspect]
     Active Substance: SODIUM CHLORIDE
     Indication: NEUROENDOCRINE TUMOUR
     Dosage: 0.9%;  50 ML 0.9% NORMAL SALINE RUNNING FROM 1 TO 5 ML/HOUR
     Route: 065
  3. LANREOTIDE [Concomitant]
     Active Substance: LANREOTIDE
     Indication: NEUROENDOCRINE TUMOUR
     Route: 065
  4. OCTREOTIDE. [Suspect]
     Active Substance: OCTREOTIDE
     Indication: NEUROENDOCRINE TUMOUR
     Dosage: 5000 MCG IN 50 ML 0.9% NORMAL SALINE RUNNING FROM 1 TO 5 ML/HOUR
     Route: 065

REACTIONS (2)
  - Carcinoid crisis [Fatal]
  - Drug ineffective [Unknown]
